FAERS Safety Report 14351352 (Version 4)
Quarter: 2018Q2

REPORT INFORMATION
  Report Type: Spontaneous
  Country: US (occurrence: US)
  Receive Date: 20180104
  Receipt Date: 20180508
  Transmission Date: 20180711
  Serious: No
  Sender: FDA-Public Use
  Company Number: US-PFIZER INC-2017553588

PATIENT
  Age: 80 Year
  Sex: Male

DRUGS (9)
  1. GLIBENCLAMIDE [Suspect]
     Active Substance: GLYBURIDE
     Dosage: UNK
  2. LISINOPRIL. [Suspect]
     Active Substance: LISINOPRIL
     Dosage: UNK
  3. METOPROLOL TARTRATE. [Suspect]
     Active Substance: METOPROLOL TARTRATE
     Dosage: UNK
  4. GEMFIBROZIL. [Suspect]
     Active Substance: GEMFIBROZIL
     Dosage: UNK
  5. LOVASTATIN. [Suspect]
     Active Substance: LOVASTATIN
     Dosage: UNK
  6. COZAAR [Suspect]
     Active Substance: LOSARTAN POTASSIUM
     Dosage: UNK
  7. ZOCOR [Suspect]
     Active Substance: SIMVASTATIN
     Dosage: UNK
  8. LIPITOR [Suspect]
     Active Substance: ATORVASTATIN CALCIUM
     Dosage: UNK
  9. METFORMIN [Suspect]
     Active Substance: METFORMIN HYDROCHLORIDE
     Dosage: UNK

REACTIONS (1)
  - Drug hypersensitivity [Unknown]
